FAERS Safety Report 18869500 (Version 1)
Quarter: 2021Q1

REPORT INFORMATION
  Report Type: Report from Study
  Country: US (occurrence: US)
  Receive Date: 20210210
  Receipt Date: 20210210
  Transmission Date: 20210420
  Serious: Yes (Other)
  Sender: FDA-Public Use
  Company Number: US-ROCHE-2631361

PATIENT
  Age: 4 Year
  Sex: Male
  Weight: 20.4 kg

DRUGS (6)
  1. CETIRIZINE [Concomitant]
     Active Substance: CETIRIZINE HYDROCHLORIDE
     Dates: start: 20200302
  2. AUVI?Q [Concomitant]
     Active Substance: EPINEPHRINE
     Dates: start: 20200609
  3. VENTOLIN [Concomitant]
     Active Substance: ALBUTEROL SULFATE
     Dates: start: 20190509
  4. HYDROCORTISONE. [Concomitant]
     Active Substance: HYDROCORTISONE
     Dates: start: 20200330
  5. BLINDED OMALIZUMAB [Suspect]
     Active Substance: OMALIZUMAB
     Indication: ASTHMA
     Dosage: ON 09/JUN/2020, HE RECEIVED MOST RECENT DOSE.
     Route: 058
     Dates: start: 20190530
  6. FLUTICASONE. [Concomitant]
     Active Substance: FLUTICASONE
     Dosage: 44 MCG
     Dates: start: 20190927, end: 20200611

REACTIONS (1)
  - Anaphylactic reaction [Recovered/Resolved]

NARRATIVE: CASE EVENT DATE: 20200614
